FAERS Safety Report 10266173 (Version 1)
Quarter: 2014Q2

REPORT INFORMATION
  Report Type: Spontaneous
  Country: US (occurrence: US)
  Receive Date: 20140627
  Receipt Date: 20140627
  Transmission Date: 20141212
  Serious: No
  Sender: FDA-Public Use
  Company Number: US-009507513-1406USA011992

PATIENT
  Age: 44 Year
  Sex: Female

DRUGS (1)
  1. MAXALT MLT [Suspect]

REACTIONS (1)
  - Paraesthesia [Unknown]
